FAERS Safety Report 4808715-8 (Version None)
Quarter: 2005Q4

REPORT INFORMATION
  Report Type: 
  Country: None (occurrence: None)
  Receive Date: 20051021
  Receipt Date: 20051021
  Transmission Date: 20060501
  Serious: No
  Sender: FDA-Public Use
  Company Number: None

PATIENT
  Sex: Female

DRUGS (12)
  1. COPAXONE [Suspect]
     Indication: MULTIPLE SCLEROSIS
     Dosage: 20 MG QD SQ
     Route: 058
  2. .. [Concomitant]
  3. STOOL SOFTNER [Concomitant]
  4. PROZAC [Concomitant]
  5. VITAMIN [Concomitant]
  6. DESYREL [Concomitant]
  7. KLONOPIN [Concomitant]
  8. LITHIUM [Concomitant]
  9. RISPERDAL [Concomitant]
  10. SEROQUEL [Concomitant]
  11. ELAVIL [Concomitant]
  12. O2 [Concomitant]

REACTIONS (5)
  - BURNING SENSATION [None]
  - CONVULSION [None]
  - DYSPNOEA [None]
  - MALAISE [None]
  - TREMOR [None]
